FAERS Safety Report 6355105-5 (Version None)
Quarter: 2009Q3

REPORT INFORMATION
  Report Type: 
  Country: None (occurrence: None)
  Receive Date: 20090914
  Receipt Date: 20090914
  Transmission Date: 20100115
  Serious: Yes (Hospitalization)
  Sender: FDA-Public Use
  Company Number: US-B.I. PHARMACEUTICALS,INC./RIDGEFIELD-2009-BP-10560BP

PATIENT
  Age: 25 Year
  Sex: Male

DRUGS (4)
  1. CATAPRES-TTS-1 [Suspect]
     Indication: HYPERTENSION
     Dosage: 0.2 MG
     Route: 061
     Dates: start: 20090101
  2. CATAPRES-TTS-1 [Suspect]
     Dosage: 0.1 MG
     Route: 061
     Dates: start: 20090101
  3. TRILEPTAL [Concomitant]
     Indication: EPILEPSY
     Dosage: 900 MG
     Route: 048
  4. LORAZEPAM [Concomitant]
     Indication: PSYCHOTIC DISORDER

REACTIONS (2)
  - BLOOD PRESSURE FLUCTUATION [None]
  - BRADYCARDIA [None]
